FAERS Safety Report 4939219-X (Version None)
Quarter: 2006Q1

REPORT INFORMATION
  Report Type: 
  Country: None (occurrence: None)
  Receive Date: 20060306
  Receipt Date: 20060223
  Transmission Date: 20060701
  Serious: Yes (Other)
  Sender: FDA-Public Use
  Company Number: 13584

PATIENT
  Age: 54 Year
  Sex: Male

DRUGS (2)
  1. METHOTREXATE [Suspect]
     Indication: CENTRAL NERVOUS SYSTEM LYMPHOMA
     Dosage: 6 G QD IV
     Route: 042
     Dates: start: 20051031
  2. METHOTREXATE [Suspect]
     Indication: CENTRAL NERVOUS SYSTEM LYMPHOMA
     Dosage: 6 G QD IV
     Route: 042
     Dates: start: 20051115

REACTIONS (3)
  - INTERSTITIAL LUNG DISEASE [None]
  - METASTASES TO LUNG [None]
  - PNEUMOCYSTIS JIROVECI PNEUMONIA [None]
